FAERS Safety Report 11635349 (Version 1)
Quarter: 2015Q4

REPORT INFORMATION
  Report Type: Spontaneous
  Country: US (occurrence: US)
  Receive Date: 20151016
  Receipt Date: 20151016
  Transmission Date: 20160304
  Serious: No
  Sender: FDA-Public Use
  Company Number: US-GLENMARK PHARMACEUTICALS INC, USA.-2015GMK014986

PATIENT
  Age: 41 Year
  Sex: Male

DRUGS (3)
  1. NABUMETONE. [Suspect]
     Active Substance: NABUMETONE
     Indication: RADICULOPATHY
     Dosage: UNK
  2. GABAPENTIN. [Suspect]
     Active Substance: GABAPENTIN
     Indication: RADICULOPATHY
     Dosage: UNK
  3. TRAMADOL. [Suspect]
     Active Substance: TRAMADOL
     Indication: RADICULOPATHY
     Dosage: UNK

REACTIONS (3)
  - Diffuse large B-cell lymphoma [None]
  - Pain [None]
  - Drug ineffective for unapproved indication [Unknown]
